FAERS Safety Report 6251722-1 (Version None)
Quarter: 2009Q2

REPORT INFORMATION
  Report Type: 
  Country: None (occurrence: None)
  Receive Date: 20090630
  Receipt Date: 20090620
  Transmission Date: 20091009
  Serious: Yes (Other)
  Sender: FDA-Public Use
  Company Number: US-PFIZER INC-2009219900

PATIENT
  Age: 29 Year
  Sex: Female
  Weight: 64.853 kg

DRUGS (1)
  1. CHANTIX [Suspect]
     Indication: SMOKING CESSATION THERAPY
     Dosage: UNK
     Route: 048
     Dates: start: 20081214, end: 20090107

REACTIONS (8)
  - ABNORMAL DREAMS [None]
  - AGGRESSION [None]
  - AGITATION [None]
  - ANGER [None]
  - DEPRESSED MOOD [None]
  - HOMICIDAL IDEATION [None]
  - NAUSEA [None]
  - SUICIDAL IDEATION [None]
